FAERS Safety Report 14166738 (Version 1)
Quarter: 2017Q4

REPORT INFORMATION
  Report Type: Spontaneous
  Country: US (occurrence: US)
  Receive Date: 20171107
  Receipt Date: 20171107
  Transmission Date: 20180321
  Serious: No
  Sender: FDA-Public Use
  Company Number: US-BAUSCH-BL-2016-031498

PATIENT
  Age: 33 Year
  Sex: Female
  Weight: 72.64 kg

DRUGS (2)
  1. VALACYCLOVIR [Concomitant]
     Active Substance: VALACYCLOVIR HYDROCHLORIDE
     Indication: KERATITIS
     Route: 048
  2. ZIRGAN [Suspect]
     Active Substance: GANCICLOVIR
     Indication: KERATITIS
     Dosage: AS DIRECTED
     Route: 061
     Dates: start: 20161212

REACTIONS (3)
  - Product quality issue [Unknown]
  - Drug ineffective [Unknown]
  - Eye irritation [Recovered/Resolved]

NARRATIVE: CASE EVENT DATE: 20161212
